FAERS Safety Report 17348831 (Version 1)
Quarter: 2020Q1

REPORT INFORMATION
  Report Type: Report from Study
  Country: US (occurrence: US)
  Receive Date: 20200129
  Receipt Date: 20200129
  Transmission Date: 20200409
  Serious: No
  Sender: FDA-Public Use
  Company Number: US-EXELIXIS-CABO-19024627

PATIENT
  Sex: Male

DRUGS (3)
  1. CABOMETYX [Suspect]
     Active Substance: CABOZANTINIB S-MALATE
     Dosage: 20 MG, QD( 9 TO 10 PM WITHOUT FOOD )
     Route: 048
     Dates: start: 20191105
  2. CABOMETYX [Suspect]
     Active Substance: CABOZANTINIB S-MALATE
     Dosage: 40 MG, QD (PM WITHOUT FOOD)
  3. CABOMETYX [Suspect]
     Active Substance: CABOZANTINIB S-MALATE
     Indication: HEPATOCELLULAR CARCINOMA
     Dosage: 40 MG, QD (PM WITHOUT FOOD)
     Dates: start: 20190928

REACTIONS (6)
  - Pruritus [Recovered/Resolved]
  - Lymphadenitis [Recovering/Resolving]
  - Constipation [Unknown]
  - Hypertension [Recovered/Resolved]
  - Nausea [Unknown]
  - Rash [Recovered/Resolved]
